FAERS Safety Report 5144378-2 (Version None)
Quarter: 2006Q4

REPORT INFORMATION
  Report Type: 
  Country: None (occurrence: None)
  Receive Date: 20061106
  Receipt Date: 20061102
  Transmission Date: 20070319
  Serious: Yes (Other)
  Sender: FDA-Public Use
  Company Number: AU-BRISTOL-MYERS SQUIBB COMPANY-13565270

PATIENT
  Sex: Male

DRUGS (2)
  1. ABILIFY [Suspect]
     Indication: SCHIZOPHRENIA
     Route: 048
  2. SEROQUEL [Concomitant]
     Indication: SCHIZOPHRENIA
     Dosage: DOSE VALUE:  ^LOW DOSE^
     Route: 048

REACTIONS (3)
  - AKATHISIA [None]
  - DEPRESSION [None]
  - FEELING OF DESPAIR [None]
